FAERS Safety Report 6231371-1 (Version None)
Quarter: 2009Q2

REPORT INFORMATION
  Report Type: 
  Country: None (occurrence: None)
  Receive Date: 20090612
  Receipt Date: 20090608
  Transmission Date: 20091009
  Serious: Yes (Death)
  Sender: FDA-Public Use
  Company Number: 09FR001150

PATIENT
  Age: 41 Year
  Sex: Female

DRUGS (1)
  1. VALPROIC ACID [Suspect]
     Indication: DRUG USE FOR UNKNOWN INDICATION

REACTIONS (1)
  - CONFUSIONAL STATE [None]
